FAERS Safety Report 9678774 (Version 4)
Quarter: 2014Q2

REPORT INFORMATION
  Report Type: Report from Study
  Country: BE (occurrence: BE)
  Receive Date: 20131108
  Receipt Date: 20140526
  Transmission Date: 20141212
  Serious: Yes (Hospitalization)
  Sender: FDA-Public Use
  Company Number: BE-ROCHE-1225668

PATIENT
  Age: 40 Year
  Sex: Female

DRUGS (3)
  1. PEG-INTERFERON ALFA 2A [Suspect]
     Indication: HEPATITIS C
     Route: 058
     Dates: start: 20121126, end: 20130506
  2. RIBAVIRIN [Suspect]
     Indication: HEPATITIS C
     Route: 048
     Dates: start: 20121126, end: 20130512
  3. TELAPREVIR [Suspect]
     Indication: HEPATITIS C
     Route: 048
     Dates: start: 20121224, end: 20130318

REACTIONS (4)
  - Diabetic hyperglycaemic coma [Recovered/Resolved]
  - Pneumonia [Recovered/Resolved]
  - Toxic encephalopathy [Recovered/Resolved]
  - Sciatica [Unknown]
